FAERS Safety Report 18930562 (Version 1)
Quarter: 2021Q1

REPORT INFORMATION
  Report Type: Report from Study
  Country: CA (occurrence: CA)
  Receive Date: 20210223
  Receipt Date: 20210223
  Transmission Date: 20210420
  Serious: Yes (Other)
  Sender: FDA-Public Use
  Company Number: CA-PFIZER INC-2021184250

PATIENT

DRUGS (3)
  1. METHOTREXATE SODIUM. [Suspect]
     Active Substance: METHOTREXATE SODIUM
     Indication: CENTRAL NERVOUS SYSTEM LYMPHOMA
     Dosage: 5 G
     Route: 013
     Dates: start: 1999
  2. FILGRASTIM [Suspect]
     Active Substance: FILGRASTIM
     Dosage: 5 UG/KG (5 MCG/KG S/C DIE)
     Route: 058
     Dates: start: 1999
  3. CALCIUM FOLINATE [Suspect]
     Active Substance: LEUCOVORIN CALCIUM
     Dosage: UNK, CYCLIC  (USED AT 36 H AFTER MTX ADMINISTRATION) UNK (USED AT 36 H AFTER MTX ADMINISTRATION)
     Dates: start: 1999

REACTIONS (1)
  - Seizure [Recovered/Resolved]
